FAERS Safety Report 10453813 (Version 1)
Quarter: 2014Q3

REPORT INFORMATION
  Report Type: Spontaneous
  Country: US (occurrence: US)
  Receive Date: 20140915
  Receipt Date: 20140915
  Transmission Date: 20150326
  Serious: No
  Sender: FDA-Public Use
  Company Number: US-BRISTOL-MYERS SQUIBB COMPANY-21291570

PATIENT
  Age: 79 Year
  Sex: Male
  Weight: 89.79 kg

DRUGS (10)
  1. COREG [Concomitant]
     Active Substance: CARVEDILOL
  2. LANTUS [Concomitant]
     Active Substance: INSULIN GLARGINE
  3. ASPIRIN. [Concomitant]
     Active Substance: ASPIRIN
  4. VITAMIN D [Concomitant]
     Active Substance: CHOLECALCIFEROL
  5. ELIQUIS [Suspect]
     Active Substance: APIXABAN
     Indication: CEREBROVASCULAR ACCIDENT PROPHYLAXIS
  6. LOSARTAN [Concomitant]
     Active Substance: LOSARTAN
  7. METAMIZOLE [Concomitant]
     Active Substance: METAMIZOLE
  8. HUMALOG [Concomitant]
     Active Substance: INSULIN LISPRO
  9. VYTORIN [Concomitant]
     Active Substance: EZETIMIBE\SIMVASTATIN
  10. KLONOPIN [Concomitant]
     Active Substance: CLONAZEPAM

REACTIONS (2)
  - Hypertension [Unknown]
  - Contusion [Unknown]
